FAERS Safety Report 5947679-0 (Version None)
Quarter: 2008Q4

REPORT INFORMATION
  Report Type: 
  Country: None (occurrence: None)
  Receive Date: 20081021
  Receipt Date: 20080403
  Transmission Date: 20090506
  Serious: Yes (Other)
  Sender: FDA-Public Use
  Company Number: HQWYE765203AUG04

PATIENT
  Age: 55 Year
  Sex: Female
  Weight: 78.54 kg

DRUGS (6)
  1. PREMARIN [Suspect]
     Indication: HOT FLUSH
     Dates: start: 19910101, end: 19950101
  2. PREMARIN [Suspect]
     Indication: HOT FLUSH
     Dates: start: 20010101
  3. PREMPRO [Suspect]
     Dates: start: 19950101, end: 20000101
  4. PREMPRO [Suspect]
     Dates: start: 20010101, end: 20020101
  5. PROMETRIUM [Suspect]
     Dates: start: 20000101, end: 20010101
  6. PROVERA [Suspect]

REACTIONS (1)
  - OVARIAN CANCER METASTATIC [None]
